FAERS Safety Report 15576972 (Version 3)
Quarter: 2019Q3

REPORT INFORMATION
  Report Type: Report from Study
  Country: None (occurrence: US)
  Receive Date: 20181101
  Receipt Date: 20190822
  Transmission Date: 20191004
  Serious: Yes (Other)
  Sender: FDA-Public Use
  Company Number: US-ABBVIE-18K-163-2540804-00

PATIENT
  Age: 58 Year
  Sex: Female

DRUGS (1)
  1. HUMIRA [Suspect]
     Active Substance: ADALIMUMAB
     Indication: RHEUMATOID ARTHRITIS
     Route: 058

REACTIONS (14)
  - Inflammation [Unknown]
  - Post-traumatic pain [Unknown]
  - Road traffic accident [Unknown]
  - Joint injury [Unknown]
  - Intervertebral disc degeneration [Unknown]
  - Cataract [Unknown]
  - Diplopia [Unknown]
  - Dizziness [Unknown]
  - Chest pain [Not Recovered/Not Resolved]
  - Ligament sprain [Unknown]
  - Neck pain [Unknown]
  - Contusion [Unknown]
  - Headache [Unknown]
  - Ear pain [Unknown]

NARRATIVE: CASE EVENT DATE: 20180813
